FAERS Safety Report 8678986 (Version 2)
Quarter: 2012Q4

REPORT INFORMATION
  Report Type: 
  Country: FR (occurrence: FR)
  Receive Date: 20120724
  Receipt Date: 20121019
  Transmission Date: 20130627
  Serious: Yes (Other)
  Sender: FDA-Public Use
  Company Number: FR-BRISTOL-MYERS SQUIBB COMPANY-16773392

PATIENT
  Age: 69 Year
  Sex: Male

DRUGS (1)
  1. COUMADINE [Suspect]
     Indication: ATRIAL FIBRILLATION
     Dosage: Interrupted on Oct10
     Route: 048
     Dates: start: 200803, end: 201010

REACTIONS (1)
  - Skin ulcer [Recovered/Resolved with Sequelae]
